FAERS Safety Report 5794915-X (Version None)
Quarter: 2008Q2

REPORT INFORMATION
  Report Type: 
  Country: None (occurrence: None)
  Receive Date: 20080626
  Receipt Date: 20080612
  Transmission Date: 20081010
  Serious: Yes (Hospitalization)
  Sender: FDA-Public Use
  Company Number: JPKYO-S-20080030

PATIENT
  Age: 63 Year
  Sex: Female

DRUGS (5)
  1. NAVELBINE [Suspect]
     Indication: NON-SMALL CELL LUNG CANCER
     Dosage: 36 MG INFUSION IV
     Route: 042
     Dates: start: 20080321
  2. GEMCITABINE [Suspect]
     Indication: NON-SMALL CELL LUNG CANCER
     Dosage: 1400 MG IV
     Route: 042
     Dates: start: 20080321
  3. TAKEPRON. MFR: NOT SPECIFIED [Concomitant]
  4. PROMAC [Concomitant]
  5. NAIXAN [Concomitant]

REACTIONS (2)
  - DISSEMINATED INTRAVASCULAR COAGULATION [None]
  - HEPATIC FAILURE [None]
